FAERS Safety Report 6102933-7 (Version None)
Quarter: 2009Q1

REPORT INFORMATION
  Report Type: 
  Country: None (occurrence: None)
  Receive Date: 20090303
  Receipt Date: 20090303
  Transmission Date: 20090719
  Serious: Yes (Hospitalization)
  Sender: FDA-Public Use
  Company Number: None

PATIENT
  Sex: Male
  Weight: 37.9 kg

DRUGS (1)
  1. IBUPROFEN TABLETS [Suspect]
     Dosage: 400 MG UP TO Q8H PO
     Route: 048

REACTIONS (3)
  - DIARRHOEA [None]
  - HAEMORRHAGIC ANAEMIA [None]
  - UPPER GASTROINTESTINAL HAEMORRHAGE [None]
